FAERS Safety Report 20602535 (Version 1)
Quarter: 2022Q1

REPORT INFORMATION
  Report Type: Spontaneous
  Country: US (occurrence: US)
  Receive Date: 20220316
  Receipt Date: 20220316
  Transmission Date: 20220423
  Serious: No
  Sender: FDA-Public Use
  Company Number: US-BAUSCH-BL-2022-006487

PATIENT
  Age: 60 Year
  Sex: Female
  Weight: 70.824 kg

DRUGS (2)
  1. ELIDEL [Suspect]
     Active Substance: PIMECROLIMUS
     Indication: Dermatitis contact
     Route: 061
     Dates: start: 20220308, end: 20220308
  2. PROGESTERONE [Concomitant]
     Active Substance: PROGESTERONE
     Indication: Product used for unknown indication
     Route: 065

REACTIONS (1)
  - Application site burn [Recovered/Resolved]

NARRATIVE: CASE EVENT DATE: 20220308
